FAERS Safety Report 21026177 (Version 1)
Quarter: 2022Q2

REPORT INFORMATION
  Report Type: Spontaneous
  Country: US (occurrence: US)
  Receive Date: 20220630
  Receipt Date: 20220630
  Transmission Date: 20220720
  Serious: No
  Sender: FDA-Public Use
  Company Number: US-JNJFOC-20220647597

PATIENT
  Sex: Female

DRUGS (3)
  1. INVEGA SUSTENNA [Suspect]
     Active Substance: PALIPERIDONE PALMITATE
     Indication: Product used for unknown indication
     Route: 030
  2. INVEGA SUSTENNA [Suspect]
     Active Substance: PALIPERIDONE PALMITATE
  3. INVEGA SUSTENNA [Suspect]
     Active Substance: PALIPERIDONE PALMITATE

REACTIONS (9)
  - Delusion [Recovered/Resolved]
  - Malaise [Unknown]
  - Somnolence [Unknown]
  - Anxiety [Unknown]
  - Polyuria [Unknown]
  - Frustration tolerance decreased [Unknown]
  - Eating disorder [Unknown]
  - Weight increased [Unknown]
  - Nervousness [Unknown]
